FAERS Safety Report 8842016 (Version 1)
Quarter: 2012Q4

REPORT INFORMATION
  Report Type: Spontaneous
  Country: US (occurrence: None)
  Receive Date: 20121015
  Receipt Date: 20121015
  Transmission Date: 20130627
  Serious: Yes (Life-Threatening)
  Sender: FDA-Public Use
  Company Number: None

PATIENT
  Age: 60 Year
  Sex: Female
  Weight: 111.13 kg

DRUGS (2)
  1. FENTANYL [Suspect]
     Indication: PAIN
     Dosage: 50 mcg/h 72hrs. adhere to body
     Route: 061
     Dates: start: 20120515
  2. FENTANYL [Suspect]
     Indication: PAIN
     Dosage: 50mcg/h 72 hrs. adhere to body
     Route: 061
     Dates: start: 20120927

REACTIONS (1)
  - Product adhesion issue [None]
